FAERS Safety Report 23655293 (Version 1)
Quarter: 2024Q1

REPORT INFORMATION
  Report Type: Report from Study
  Country: AU (occurrence: AU)
  Receive Date: 20240320
  Receipt Date: 20240320
  Transmission Date: 20240410
  Serious: Yes (Hospitalization, Other)
  Sender: FDA-Public Use
  Company Number: AU-JNJFOC-20240335150

PATIENT
  Age: 52 Year
  Sex: Male

DRUGS (6)
  1. BORTEZOMIB [Suspect]
     Active Substance: BORTEZOMIB
     Indication: Malignant melanoma
     Dosage: 2.9 MILLIGRAM
     Route: 058
     Dates: start: 20200228, end: 20200622
  2. DEXAMETHASONE [Suspect]
     Active Substance: DEXAMETHASONE
     Indication: Malignant melanoma
     Dosage: 20 MILLIGRAM
     Route: 042
     Dates: start: 20200228, end: 20200228
  3. ISATUXIMAB [Suspect]
     Active Substance: ISATUXIMAB
     Indication: Malignant melanoma
     Dosage: 960 MILLIGRAM
     Route: 042
     Dates: start: 20200228, end: 20220823
  4. LENALIDOMIDE [Suspect]
     Active Substance: LENALIDOMIDE
     Indication: Malignant melanoma
     Dosage: 15 MILLIGRAM
     Route: 048
     Dates: start: 20200228, end: 20220817
  5. FILGRASTIM [Concomitant]
     Active Substance: FILGRASTIM
     Indication: Malignant melanoma
     Dosage: UNK
     Route: 065
     Dates: start: 20200804
  6. MELPHALAN [Concomitant]
     Active Substance: MELPHALAN
     Indication: Malignant melanoma
     Dosage: UNK
     Route: 065
     Dates: start: 20200901

REACTIONS (1)
  - Diverticulitis [Recovered/Resolved]

NARRATIVE: CASE EVENT DATE: 20220805
